FAERS Safety Report 17517601 (Version 1)
Quarter: 2020Q1

REPORT INFORMATION
  Report Type: Report from Study
  Country: US (occurrence: US)
  Receive Date: 20200309
  Receipt Date: 20200309
  Transmission Date: 20200409
  Serious: No
  Sender: FDA-Public Use
  Company Number: NVSC2020US065891

PATIENT
  Age: 56 Year
  Sex: Male

DRUGS (2)
  1. ENTRESTO [Suspect]
     Active Substance: SACUBITRIL\VALSARTAN
     Dosage: 1 DF (SACUBITRIL 24MG/VALSARTAN 26MG), BID
     Route: 048
     Dates: start: 20200201
  2. ENTRESTO [Suspect]
     Active Substance: SACUBITRIL\VALSARTAN
     Indication: CARDIAC FAILURE
     Dosage: 0.5 DF (SACUBITRIL 24MG/VALSARTAN 26MG), BID
     Route: 048
     Dates: start: 202001

REACTIONS (3)
  - Dizziness [Recovered/Resolved]
  - Wrong technique in product usage process [Unknown]
  - Underdose [Unknown]

NARRATIVE: CASE EVENT DATE: 20200201
